FAERS Safety Report 13172547 (Version 3)
Quarter: 2017Q1

REPORT INFORMATION
  Report Type: Report from Study
  Country: US (occurrence: US)
  Receive Date: 20170131
  Receipt Date: 20170328
  Transmission Date: 20170428
  Serious: Yes (Hospitalization)
  Sender: FDA-Public Use
  Company Number: US-ACTELION-A-NJ2016-138315

PATIENT
  Age: 58 Year
  Sex: Female
  Weight: 81.63 kg

DRUGS (3)
  1. OPSUMIT [Suspect]
     Active Substance: MACITENTAN
     Indication: PULMONARY HYPERTENSION
     Dosage: 10 MG, QD
     Route: 048
     Dates: start: 20140409
  2. TYVASO [Concomitant]
     Active Substance: TREPROSTINIL
  3. REVATIO [Concomitant]
     Active Substance: SILDENAFIL CITRATE

REACTIONS (7)
  - Cardiac failure congestive [Unknown]
  - Wrist fracture [Unknown]
  - Syncope [Unknown]
  - Pulmonary arterial hypertension [Recovering/Resolving]
  - Condition aggravated [Recovering/Resolving]
  - Loss of consciousness [Unknown]
  - Fall [Unknown]
